FAERS Safety Report 26098991 (Version 1)
Quarter: 2025Q4

REPORT INFORMATION
  Report Type: Spontaneous
  Country: EU (occurrence: EU)
  Receive Date: 20251128
  Receipt Date: 20251128
  Transmission Date: 20260118
  Serious: Yes (Other)
  Sender: ABBVIE
  Company Number: EU-ABBVIE-6562918

PATIENT
  Age: 35 Year
  Sex: Male
  Weight: 72 kg

DRUGS (3)
  1. HUMIRA [Suspect]
     Active Substance: ADALIMUMAB
     Indication: Crohn^s disease
     Route: 058
     Dates: start: 2018
  2. HUMIRA [Suspect]
     Active Substance: ADALIMUMAB
     Route: 058
     Dates: start: 201808, end: 2022
  3. BUDESONIDE [Concomitant]
     Active Substance: BUDESONIDE
     Indication: Product used for unknown indication

REACTIONS (6)
  - Ileal stenosis [Unknown]
  - Crohn^s disease [Recovered/Resolved]
  - Weight decreased [Unknown]
  - Gastrointestinal disorder [Unknown]
  - Crohn^s disease [Unknown]
  - Gastrointestinal scarring [Unknown]

NARRATIVE: CASE EVENT DATE: 20180101
